FAERS Safety Report 6334795-7 (Version None)
Quarter: 2009Q3

REPORT INFORMATION
  Report Type: 
  Country: None (occurrence: None)
  Receive Date: 20090831
  Receipt Date: 20090820
  Transmission Date: 20100115
  Serious: Yes (Other)
  Sender: FDA-Public Use
  Company Number: ES-JNJFOC-20090206443

PATIENT
  Age: 32 Year
  Sex: Female

DRUGS (4)
  1. INFLIXIMAB [Suspect]
     Route: 042
  2. INFLIXIMAB [Suspect]
     Route: 042
  3. INFLIXIMAB [Suspect]
     Route: 042
  4. INFLIXIMAB [Suspect]
     Indication: COLITIS ULCERATIVE
     Dosage: WEEKS 0, 2, AND 6
     Route: 042

REACTIONS (1)
  - LANGERHANS' CELL GRANULOMATOSIS [None]
